FAERS Safety Report 8455967-1 (Version None)
Quarter: 2012Q2

REPORT INFORMATION
  Report Type: 
  Country: None (occurrence: None)
  Receive Date: 20120621
  Receipt Date: 20120611
  Transmission Date: 20120825
  Serious: Yes (Hospitalization)
  Sender: FDA-Public Use
  Company Number: US-BAYER-2012-012226

PATIENT
  Age: 19 Year
  Sex: Female
  Weight: 63.039 kg

DRUGS (9)
  1. YAZ [Suspect]
     Indication: PRODUCT USED FOR UNKNOWN INDICATION
     Dosage: UNK
     Dates: start: 20070601, end: 20071101
  2. CLARITIN [Concomitant]
     Dosage: 10 MG, UNK
     Route: 048
     Dates: start: 20071207
  3. PRILOSEC [Concomitant]
     Dosage: 40 MG, UNK
     Route: 048
     Dates: start: 20071207
  4. ADVAIR DISKUS 100/50 [Concomitant]
     Dosage: 50/500MG
     Route: 045
     Dates: start: 20071207
  5. DICYCLOMINE [Concomitant]
     Dosage: 20 MG, UNK
     Dates: start: 20081208
  6. SINGULAIR [Concomitant]
     Dosage: 10 MG, UNK
     Route: 048
     Dates: start: 20071207
  7. BENTYL [Concomitant]
     Dosage: UNK
     Dates: start: 20071207
  8. TORADOL [Concomitant]
     Dosage: 30 MG, UNK
     Route: 042
     Dates: start: 20071207
  9. CELEXA [Concomitant]
     Dosage: 20 MG, UNK
     Route: 048
     Dates: start: 20071207

REACTIONS (4)
  - GALLBLADDER DISORDER [None]
  - ABDOMINAL DISCOMFORT [None]
  - PANCREATITIS [None]
  - CHOLECYSTITIS CHRONIC [None]
